FAERS Safety Report 6228038-2 (Version None)
Quarter: 2009Q2

REPORT INFORMATION
  Report Type: 
  Country: None (occurrence: None)
  Receive Date: 20090612
  Receipt Date: 20090604
  Transmission Date: 20091009
  Serious: Yes (Hospitalization, Disabling, Other)
  Sender: FDA-Public Use
  Company Number: US-MERCK-0806USA03039

PATIENT
  Age: 67 Year
  Sex: Female
  Weight: 59 kg

DRUGS (2)
  1. FOSAMAX [Suspect]
     Route: 048
     Dates: start: 19980101, end: 20060601
  2. FOSAMAX [Suspect]
     Route: 048
     Dates: end: 20060701

REACTIONS (59)
  - ABDOMINAL DISCOMFORT [None]
  - ABDOMINAL DISTENSION [None]
  - ABSCESS ORAL [None]
  - APPENDIX DISORDER [None]
  - ARTHRALGIA [None]
  - ARTHROPATHY [None]
  - BACK DISORDER [None]
  - BACK PAIN [None]
  - BONE ABSCESS [None]
  - CATARACT [None]
  - CELLULITIS [None]
  - CENTRAL NERVOUS SYSTEM LESION [None]
  - CEREBRAL VENTRICLE DILATATION [None]
  - CLOSTRIDIUM DIFFICILE COLITIS [None]
  - CONTRAST MEDIA ALLERGY [None]
  - DEAFNESS UNILATERAL [None]
  - DIARRHOEA [None]
  - DRUG HYPERSENSITIVITY [None]
  - FACIAL PALSY [None]
  - FALL [None]
  - FATIGUE [None]
  - GASTROOESOPHAGEAL REFLUX DISEASE [None]
  - HEAD INJURY [None]
  - HEADACHE [None]
  - HYPOAESTHESIA [None]
  - HYPOGAMMAGLOBULINAEMIA [None]
  - HYPOTENSION [None]
  - IMPAIRED GASTRIC EMPTYING [None]
  - INTERVERTEBRAL DISC DEGENERATION [None]
  - IODINE ALLERGY [None]
  - JAW DISORDER [None]
  - LUDWIG ANGINA [None]
  - LUMBAR SPINAL STENOSIS [None]
  - MENINGIOMA [None]
  - NEURILEMMOMA [None]
  - NEUROFIBROMA [None]
  - NEUROFIBROMATOSIS [None]
  - NUMB CHIN SYNDROME [None]
  - ORAL TORUS [None]
  - OSTEOMYELITIS [None]
  - OSTEONECROSIS [None]
  - PAIN [None]
  - POST LAMINECTOMY SYNDROME [None]
  - RADICULOPATHY [None]
  - RASH ERYTHEMATOUS [None]
  - RASH VESICULAR [None]
  - RENAL FAILURE ACUTE [None]
  - RESORPTION BONE INCREASED [None]
  - RHEUMATOID ARTHRITIS [None]
  - SCOLIOSIS [None]
  - SEPSIS [None]
  - TREATMENT FAILURE [None]
  - ULCER [None]
  - UTERINE DISORDER [None]
  - VASCULAR INSUFFICIENCY [None]
  - VIRAL INFECTION [None]
  - VITAMIN D DEFICIENCY [None]
  - WEIGHT DECREASED [None]
  - WHITE BLOOD CELL ANALYSIS DECREASED [None]
